FAERS Safety Report 5896730-5 (Version None)
Quarter: 2008Q3

REPORT INFORMATION
  Report Type: 
  Country: None (occurrence: None)
  Receive Date: 20080924
  Receipt Date: 20071213
  Transmission Date: 20090109
  Serious: Yes (Other)
  Sender: FDA-Public Use
  Company Number: US-ASTRAZENECA-2007UW28444

PATIENT
  Age: 26 Year
  Sex: Male

DRUGS (3)
  1. SEROQUEL [Suspect]
     Indication: BIPOLAR DISORDER
     Route: 048
     Dates: end: 20071211
  2. CYMBALTA [Concomitant]
     Dates: end: 20071211
  3. LAMICTAL [Concomitant]
     Dates: end: 20071211

REACTIONS (1)
  - CONVULSION [None]
